FAERS Safety Report 17467614 (Version 1)
Quarter: 2020Q1

REPORT INFORMATION
  Report Type: Spontaneous
  Country: US (occurrence: US)
  Receive Date: 20200226
  Receipt Date: 20200226
  Transmission Date: 20200409
  Serious: Yes (Hospitalization, Disabling)
  Sender: FDA-Public Use
  Company Number: None

PATIENT
  Age: 65 Year
  Sex: Male
  Weight: 85.5 kg

DRUGS (8)
  1. BUMETANIDE 1MG [Concomitant]
     Active Substance: BUMETANIDE
  2. INSULIN [Concomitant]
     Active Substance: INSULIN NOS
  3. CLOPIDOGREL BISULFATE 75MG [Concomitant]
  4. SACUBITRIL 97MG/VALSARTAN 103MG [Concomitant]
  5. METOPROLOL SUCCINATE 50MG [Concomitant]
     Active Substance: METOPROLOL SUCCINATE
  6. ASPIRIN 81MG [Concomitant]
     Active Substance: ASPIRIN
  7. JANUMET [Suspect]
     Active Substance: METFORMIN HYDROCHLORIDE\SITAGLIPTIN PHOSPHATE
     Indication: DIABETES MELLITUS
     Dosage: ?          QUANTITY:60 TABLET(S);?
     Route: 048
     Dates: start: 20190902
  8. BENADRYL ULTRATABS 25MG [Concomitant]

REACTIONS (6)
  - Toe amputation [None]
  - Diabetic gangrene [None]
  - Localised infection [None]
  - Hypersensitivity [None]
  - Blood lactic acid [None]
  - Drug hypersensitivity [None]

NARRATIVE: CASE EVENT DATE: 20180910
